FAERS Safety Report 8246686-5 (Version None)
Quarter: 2012Q1

REPORT INFORMATION
  Report Type: 
  Country: None (occurrence: None)
  Receive Date: 20120330
  Receipt Date: 20120320
  Transmission Date: 20120608
  Serious: Yes (Other)
  Sender: FDA-Public Use
  Company Number: GB-ABBOTT-12P-167-0902265-00

PATIENT
  Sex: Female
  Weight: 71.6 kg

DRUGS (5)
  1. DICLOFENAC SODIUM [Concomitant]
     Indication: ANALGESIC THERAPY
  2. PREDNISOLONE [Concomitant]
     Indication: HYPERSENSITIVITY
     Route: 048
     Dates: start: 20120203, end: 20120207
  3. HUMIRA [Suspect]
     Indication: PSORIATIC ARTHROPATHY
     Route: 058
     Dates: start: 20120124, end: 20120201
  4. DICLOFENAC SODIUM [Concomitant]
     Indication: PSORIATIC ARTHROPATHY
     Route: 048
     Dates: start: 20091001, end: 20120207
  5. ACETAMINOPHEN AND CODEINE PHOSPHATE [Concomitant]
     Indication: ANALGESIC THERAPY
     Dosage: 30/500
     Route: 048
     Dates: start: 20091001

REACTIONS (5)
  - SNEEZING [None]
  - LACRIMATION INCREASED [None]
  - RHINORRHOEA [None]
  - URTICARIA [None]
  - DYSGEUSIA [None]
